FAERS Safety Report 20908316 (Version 1)
Quarter: 2022Q2

REPORT INFORMATION
  Report Type: Spontaneous
  Country: CN (occurrence: CN)
  Receive Date: 20220603
  Receipt Date: 20220603
  Transmission Date: 20220721
  Serious: Yes (Life-Threatening, Hospitalization)
  Sender: FDA-Public Use
  Company Number: CN-SUN PHARMACEUTICAL INDUSTRIES LTD-2022R1-339016

PATIENT
  Age: 34 Year
  Sex: Male

DRUGS (5)
  1. OLANZAPINE [Suspect]
     Active Substance: OLANZAPINE
     Indication: Schizophrenia
     Dosage: 5 MILLIGRAM, DAILY
     Route: 048
  2. TENOFOVIR DISOPROXIL FUMARATE [Suspect]
     Active Substance: TENOFOVIR DISOPROXIL FUMARATE
     Indication: Guillain-Barre syndrome
     Dosage: 300 MILLIGRAM, DAILY
     Route: 048
  3. COBALAMIN [Suspect]
     Active Substance: COBALAMIN
     Indication: Schizophrenia
     Dosage: UNK
     Route: 030
  4. MAGNESIUM ISOGLYCYRRHIZINATE [Suspect]
     Active Substance: MAGNESIUM ISOGLYCYRRHIZINATE
     Indication: Prophylaxis
     Dosage: 0.1 GRAM, DAILY
     Route: 042
  5. THIAMINE [Suspect]
     Active Substance: THIAMINE
     Indication: Schizophrenia
     Dosage: UNK
     Route: 030

REACTIONS (2)
  - Acute respiratory failure [Recovering/Resolving]
  - Condition aggravated [Unknown]
